FAERS Safety Report 16735581 (Version 5)
Quarter: 2019Q3

REPORT INFORMATION
  Report Type: Spontaneous
  Country: FR (occurrence: FR)
  Receive Date: 20190823
  Receipt Date: 20190920
  Transmission Date: 20191005
  Serious: Yes (Life-Threatening, Hospitalization, Other)
  Sender: FDA-Public Use
  Company Number: PHHY2019FR194023

PATIENT
  Age: 66 Year
  Sex: Male
  Weight: 76 kg

DRUGS (28)
  1. AMBISOME [Suspect]
     Active Substance: AMPHOTERICIN B
     Indication: TRICHOSPORON INFECTION
     Dosage: 3 MG/KG, DAILY (LIPOSOMAL FORM)
     Route: 042
     Dates: start: 20180718, end: 20180828
  2. AMBISOME [Suspect]
     Active Substance: AMPHOTERICIN B
     Indication: FUNGAEMIA
  3. BLINATUMOMAB [Suspect]
     Active Substance: BLINATUMOMAB
     Indication: PANCYTOPENIA
  4. VORICONAZOLE. [Suspect]
     Active Substance: VORICONAZOLE
     Dosage: 4 MG/KG, Q12H
     Route: 042
     Dates: start: 20180719
  5. CASPOFUNGIN [Concomitant]
     Active Substance: CASPOFUNGIN
     Indication: FUNGAL INFECTION
     Dosage: UNK
     Route: 065
  6. CASPOFUNGIN [Concomitant]
     Active Substance: CASPOFUNGIN
     Indication: TRICHOSPORON INFECTION
  7. VORICONAZOLE. [Suspect]
     Active Substance: VORICONAZOLE
     Indication: TRICHOSPORON INFECTION
     Dosage: 8 MG/KG, Q12H
     Route: 042
     Dates: start: 20180719
  8. VORICONAZOLE. [Suspect]
     Active Substance: VORICONAZOLE
     Dosage: 6 MG/KG, Q12H
     Route: 042
     Dates: start: 20180718
  9. BLINATUMOMAB [Suspect]
     Active Substance: BLINATUMOMAB
     Indication: B PRECURSOR TYPE ACUTE LEUKAEMIA
  10. LENALIDOMIDE [Concomitant]
     Active Substance: LENALIDOMIDE
     Indication: PLASMA CELL MYELOMA
     Dosage: 33 CYCLES
     Route: 065
  11. VORICONAZOLE. [Suspect]
     Active Substance: VORICONAZOLE
     Dosage: 12 MG/KG, Q12H
     Route: 042
     Dates: start: 20180718
  12. CASPOFUNGIN [Concomitant]
     Active Substance: CASPOFUNGIN
     Indication: EVIDENCE BASED TREATMENT
  13. CASPOFUNGIN [Concomitant]
     Active Substance: CASPOFUNGIN
     Indication: EVIDENCE BASED TREATMENT
  14. CASPOFUNGIN ACETATE. [Concomitant]
     Active Substance: CASPOFUNGIN ACETATE
     Indication: FUNGAL INFECTION
  15. VORICONAZOLE. [Suspect]
     Active Substance: VORICONAZOLE
     Dosage: 6 MG/KG EVERY 12 HRS FOR 1 DAY AND THEN, 4 MG/KG EVERY 12 HRS) AND REDUCED TO 2 MG/KG
     Route: 042
     Dates: start: 20180718
  16. BLINATUMOMAB [Suspect]
     Active Substance: BLINATUMOMAB
     Indication: ACUTE LYMPHOCYTIC LEUKAEMIA
  17. DEXAMETHASONE. [Suspect]
     Active Substance: DEXAMETHASONE
     Indication: PLASMA CELL MYELOMA
     Route: 065
  18. CASPOFUNGIN ACETATE. [Concomitant]
     Active Substance: CASPOFUNGIN ACETATE
     Indication: FEBRILE NEUTROPENIA
     Dosage: UNK
     Route: 065
  19. VORICONAZOLE. [Suspect]
     Active Substance: VORICONAZOLE
     Dosage: 2 MG/KG, Q12H
     Route: 042
     Dates: start: 20180726, end: 20180801
  20. VORICONAZOLE. [Suspect]
     Active Substance: VORICONAZOLE
     Dosage: 2 MG/KG, Q12H
     Route: 065
  21. BORTEZOMIB. [Suspect]
     Active Substance: BORTEZOMIB
     Indication: PLASMA CELL MYELOMA
     Route: 065
  22. BLINATUMOMAB [Suspect]
     Active Substance: BLINATUMOMAB
     Indication: ACUTE LYMPHOCYTIC LEUKAEMIA
  23. VORICONAZOLE. [Suspect]
     Active Substance: VORICONAZOLE
     Dosage: 2 MG/KG, 2X/DAY (DECREASED)
     Route: 042
     Dates: start: 20180726, end: 20180801
  24. BLINATUMOMAB [Suspect]
     Active Substance: BLINATUMOMAB
     Indication: B-CELL TYPE ACUTE LEUKAEMIA
     Dosage: CYCLIC
     Route: 065
     Dates: start: 201806, end: 20180718
  25. BLINATUMOMAB [Suspect]
     Active Substance: BLINATUMOMAB
     Indication: B PRECURSOR TYPE ACUTE LEUKAEMIA
  26. MELPHALAN. [Suspect]
     Active Substance: MELPHALAN
     Indication: PLASMA CELL MYELOMA
     Route: 065
  27. CASPOFUNGIN [Concomitant]
     Active Substance: CASPOFUNGIN
     Indication: FEBRILE NEUTROPENIA
  28. MUROMONAB-CD3 [Concomitant]
     Active Substance: MUROMONAB-CD3
     Indication: B-CELL TYPE ACUTE LEUKAEMIA
     Route: 065

REACTIONS (15)
  - Fungaemia [Recovered/Resolved]
  - Acute lymphocytic leukaemia [Recovered/Resolved]
  - Nervous system disorder [Recovered/Resolved]
  - Drug level increased [Recovered/Resolved]
  - Hallucination [Recovered/Resolved]
  - Acute biphenotypic leukaemia [Recovered/Resolved]
  - Febrile neutropenia [Recovered/Resolved]
  - Neurotoxicity [Recovered/Resolved]
  - Leukopenia [Recovered/Resolved]
  - White blood cell count increased [Unknown]
  - Rash erythematous [Recovered/Resolved]
  - Product use in unapproved indication [Unknown]
  - Trichosporon infection [Recovered/Resolved]
  - Immunosuppression [Recovered/Resolved]
  - Neurological symptom [Recovered/Resolved]

NARRATIVE: CASE EVENT DATE: 201503
